FAERS Safety Report 5561531-4 (Version None)
Quarter: 2007Q4

REPORT INFORMATION
  Report Type: 
  Country: None (occurrence: None)
  Receive Date: 20071215
  Receipt Date: 20071019
  Transmission Date: 20080405
  Serious: No
  Sender: FDA-Public Use
  Company Number: US-AMGEN-KDL248773

PATIENT
  Sex: Female

DRUGS (2)
  1. ENBREL [Suspect]
     Indication: ANKYLOSING SPONDYLITIS
     Route: 058
     Dates: start: 20071010
  2. METHOTREXATE [Concomitant]
     Route: 048
     Dates: start: 20071010

REACTIONS (4)
  - HEADACHE [None]
  - SINUS CONGESTION [None]
  - SINUSITIS [None]
  - TOOTHACHE [None]
